FAERS Safety Report 19159844 (Version 1)
Quarter: 2021Q2

REPORT INFORMATION
  Report Type: Spontaneous
  Country: US (occurrence: US)
  Receive Date: 20210420
  Receipt Date: 20210420
  Transmission Date: 20210717
  Serious: No
  Sender: FDA-Public Use
  Company Number: US-DRREDDYS-USA/USA/21/0134443

PATIENT
  Age: 48 Year
  Sex: Male

DRUGS (2)
  1. ZENATANE [Suspect]
     Active Substance: ISOTRETINOIN
     Indication: PRODUCT USED FOR UNKNOWN INDICATION
     Dosage: RMA ISSUE DATE: 3/NOV/2020 12:00:00 AM, 21/DEC/2020 12:00:00 AM
     Route: 048
  2. ZENATANE [Suspect]
     Active Substance: ISOTRETINOIN
     Dosage: RMA ISSUE DATE: 3/NOV/2020 12:00:00 AM, 21/DEC/2020 12:00:00 AM, 18/JAN/2021 12:00:00 AM, 23/FEB/202
     Route: 048

REACTIONS (1)
  - Photosensitivity reaction [Unknown]
